FAERS Safety Report 7949649-X (Version None)
Quarter: 2011Q4

REPORT INFORMATION
  Report Type: 
  Country: None (occurrence: None)
  Receive Date: 20111130
  Receipt Date: 20111116
  Transmission Date: 20120403
  Serious: Yes (Other)
  Sender: FDA-Public Use
  Company Number: IT-CELGENEUS-083-21880-11080672

PATIENT
  Sex: Male

DRUGS (14)
  1. DEXAMETHASONE SODIUM PHOSPHATE [Concomitant]
     Indication: DRUG THERAPY
     Route: 065
  2. OMEPRAZOLE [Concomitant]
     Dosage: 20 MILLIGRAM
     Route: 065
  3. GABAPENTIN [Concomitant]
     Dosage: 300 MILLIGRAM
     Route: 065
  4. GLUCOSE SOLUTION [Concomitant]
     Indication: PARENTERAL NUTRITION
     Dosage: 500 MILLILITER
     Route: 065
  5. FREAMINE [Concomitant]
     Indication: PARENTERAL NUTRITION
     Route: 065
  6. DURAGESIC-100 [Concomitant]
     Dosage: 600 MICROGRAM
     Route: 065
  7. INTRALIP [Concomitant]
     Indication: PARENTERAL NUTRITION
     Dosage: 250 MILLILITER
     Route: 065
  8. OMEPRAZOLE [Concomitant]
     Indication: PARENTERAL NUTRITION
     Route: 065
  9. CERNEVIT-12 [Concomitant]
     Indication: PARENTERAL NUTRITION
     Route: 065
  10. LEVETIRACETAM [Concomitant]
     Indication: PARENTERAL NUTRITION
     Route: 065
  11. SELEPARINA [Concomitant]
     Dosage: 1.6 DOSAGE FORMS
     Route: 065
  12. LEXOTAN [Concomitant]
     Route: 065
  13. REVLIMID [Suspect]
     Indication: MULTIPLE MYELOMA
     Dosage: 10 MILLIGRAM
     Route: 048
     Dates: start: 20090426, end: 20101027
  14. ELECTOLYTIC SOLUTION [Concomitant]
     Route: 065

REACTIONS (1)
  - LUNG ADENOCARCINOMA METASTATIC [None]
